FAERS Safety Report 22194964 (Version 1)
Quarter: 2023Q2

REPORT INFORMATION
  Report Type: Spontaneous
  Country: US (occurrence: US)
  Receive Date: 20230411
  Receipt Date: 20230411
  Transmission Date: 20230721
  Serious: No
  Sender: FDA-Public Use
  Company Number: US-RECORDATI-2023002090

PATIENT

DRUGS (2)
  1. SIGNIFOR [Suspect]
     Active Substance: PASIREOTIDE DIASPARTATE
     Indication: Product used for unknown indication
     Dosage: UNK
  2. RECORLEV [Suspect]
     Active Substance: LEVOKETOCONAZOLE
     Indication: Product used for unknown indication
     Dosage: UNK
     Dates: start: 20230223

REACTIONS (2)
  - Hypercalcaemia [Unknown]
  - Glycosylated haemoglobin increased [Unknown]

NARRATIVE: CASE EVENT DATE: 20230101
